FAERS Safety Report 7459275-7 (Version None)
Quarter: 2011Q2

REPORT INFORMATION
  Report Type: 
  Country: None (occurrence: None)
  Receive Date: 20110426
  Receipt Date: 20110412
  Transmission Date: 20111010
  Serious: Yes (Hospitalization, Other)
  Sender: FDA-Public Use
  Company Number: 031134

PATIENT
  Age: 19 Year
  Sex: Male

DRUGS (2)
  1. UNKNOWN (ZEBINIX) [Suspect]
  2. KEPPRA [Suspect]

REACTIONS (2)
  - PNEUMONIA [None]
  - LEUKOPENIA [None]
